FAERS Safety Report 14719184 (Version 2)
Quarter: 2018Q2

REPORT INFORMATION
  Report Type: Report from Study
  Country: DE (occurrence: DE)
  Receive Date: 20180405
  Receipt Date: 20180514
  Transmission Date: 20180711
  Serious: Yes (Hospitalization, Other)
  Sender: FDA-Public Use
  Company Number: DE-ROCHE-1953434

PATIENT
  Age: 75 Year
  Sex: Male
  Weight: 66 kg

DRUGS (9)
  1. OBINUTUZUMAB. [Suspect]
     Active Substance: OBINUTUZUMAB
     Dosage: 1000 MG AT DAY 1 FOR ALL SUBSEQUENT CYCLES UNTIL THE END OF CYCLE 6?MOST RECENT DOSE ON 13/DEC/2016
     Route: 042
     Dates: start: 20161213
  2. OBINUTUZUMAB. [Suspect]
     Active Substance: OBINUTUZUMAB
     Indication: CHRONIC LYMPHOCYTIC LEUKAEMIA
     Dosage: DATE OF MOST RECENT DOSE 1000 MG OF OBINUTUZUMAB PRIOR TO SERIOUS ADVERSE EVENT  (SAE) ONSET: 18/OCT
     Route: 042
     Dates: start: 20160607
  3. ASPIRIN. [Concomitant]
     Active Substance: ASPIRIN
     Indication: CARDIAC FAILURE
     Route: 048
     Dates: start: 20160823
  4. ESIDRIX [Concomitant]
     Active Substance: HYDROCHLOROTHIAZIDE
     Indication: HYPERTENSION
     Route: 048
     Dates: start: 2006
  5. CRATAEGUTT [Concomitant]
     Indication: CARDIAC FAILURE
     Route: 048
     Dates: start: 200610
  6. CHLORAMBUCIL [Suspect]
     Active Substance: CHLORAMBUCIL
     Indication: CHRONIC LYMPHOCYTIC LEUKAEMIA
     Dosage: DATE OF MOST RECENT DOSE 34 MG OF CHLORAMBUCIL PRIOR TO SERIOUS ADVERSE EVENT  (SAE) ONSET: 02/NOV/2
     Route: 048
     Dates: start: 20160607
  7. CANDESARTAN. [Concomitant]
     Active Substance: CANDESARTAN
     Indication: HYPERTENSION
     Route: 048
     Dates: start: 200602
  8. SIMVAHEXAL [Concomitant]
     Active Substance: SIMVASTATIN
     Indication: HYPERCHOLESTEROLAEMIA
     Route: 048
     Dates: start: 2006
  9. ALLOPURINOL. [Concomitant]
     Active Substance: ALLOPURINOL
     Route: 048
     Dates: start: 20160603

REACTIONS (2)
  - Metastases to lymph nodes [Not Recovered/Not Resolved]
  - Squamous cell carcinoma of skin [Not Recovered/Not Resolved]

NARRATIVE: CASE EVENT DATE: 20161107
